FAERS Safety Report 8471727-X (Version None)
Quarter: 2012Q2

REPORT INFORMATION
  Report Type: 
  Country: None (occurrence: None)
  Receive Date: 20120627
  Receipt Date: 20120622
  Transmission Date: 20120825
  Serious: Yes (Hospitalization)
  Sender: FDA-Public Use
  Company Number: JP-GLAXOSMITHKLINE-B0810526A

PATIENT
  Sex: Male

DRUGS (2)
  1. UNSPECIFIED MEDICATION [Concomitant]
     Indication: BENIGN PROSTATIC HYPERPLASIA
  2. ALBUTEROL SULFATE [Suspect]
     Indication: ASTHMA
     Route: 055

REACTIONS (3)
  - ARRHYTHMIA [None]
  - CARDIO-RESPIRATORY ARREST [None]
  - PLEURAL EFFUSION [None]
